FAERS Safety Report 16986804 (Version 3)
Quarter: 2019Q4

REPORT INFORMATION
  Report Type: Report from Study
  Country: None (occurrence: SE)
  Receive Date: 20191101
  Receipt Date: 20191121
  Transmission Date: 20200122
  Serious: Yes (Hospitalization)
  Sender: FDA-Public Use
  Company Number: SE-ABBVIE-19K-150-2984049-00

PATIENT
  Age: 63 Year
  Sex: Male

DRUGS (2)
  1. DUODOPA [Suspect]
     Active Substance: CARBIDOPA\LEVODOPA
     Indication: PARKINSON^S DISEASE
     Route: 050
     Dates: start: 20160126, end: 2016
  2. DUODOPA [Suspect]
     Active Substance: CARBIDOPA\LEVODOPA
     Route: 050
     Dates: start: 20160310

REACTIONS (9)
  - Pneumonia [Recovering/Resolving]
  - General physical health deterioration [Unknown]
  - Hypophagia [Unknown]
  - Confusional state [Unknown]
  - Fluid intake reduced [Unknown]
  - Stoma site infection [Unknown]
  - Balance disorder [Unknown]
  - Dysphagia [Unknown]
  - Embedded device [Unknown]

NARRATIVE: CASE EVENT DATE: 20191027
